FAERS Safety Report 23146329 (Version 1)
Quarter: 2023Q4

REPORT INFORMATION
  Report Type: Spontaneous
  Country: US (occurrence: US)
  Receive Date: 20231104
  Receipt Date: 20231104
  Transmission Date: 20240109
  Serious: No
  Sender: FDA-Public Use
  Company Number: US-UNITED THERAPEUTICS-UNT-2023-031169

PATIENT

DRUGS (2)
  1. TYVASO [Suspect]
     Active Substance: TREPROSTINIL
     Indication: Pulmonary arterial hypertension
     Dosage: UNK
     Dates: start: 2023
  2. MACITENTAN [Suspect]
     Active Substance: MACITENTAN
     Indication: Pulmonary arterial hypertension
     Dosage: 10 MG, QD
     Route: 048
     Dates: start: 202103

REACTIONS (9)
  - Hypotension [Unknown]
  - Weight decreased [Unknown]
  - Decreased appetite [Unknown]
  - Asthenia [Not Recovered/Not Resolved]
  - Peripheral swelling [Not Recovered/Not Resolved]
  - Depressed mood [Unknown]
  - Fluid retention [Unknown]
  - Gastrointestinal disorder [Unknown]
  - Nausea [Unknown]

NARRATIVE: CASE EVENT DATE: 20230101
